FAERS Safety Report 24657316 (Version 1)
Quarter: 2024Q4

REPORT INFORMATION
  Report Type: Report from Study
  Country: BR (occurrence: BR)
  Receive Date: 20241125
  Receipt Date: 20241125
  Transmission Date: 20250114
  Serious: Yes (Disabling)
  Sender: TAKEDA
  Company Number: BR-TAKEDA-BR202034004

PATIENT
  Sex: Male
  Weight: 109 kg

DRUGS (4)
  1. HEMO-8R [Suspect]
     Active Substance: ANTIHEMOPHILIC FACTOR, HUMAN RECOMBINANT
     Indication: Factor VIII deficiency
     Dosage: 3000 INTERNATIONAL UNIT, 3/WEEK
     Dates: start: 19970830
  2. HEMO-8R [Suspect]
     Active Substance: ANTIHEMOPHILIC FACTOR, HUMAN RECOMBINANT
     Dosage: 2500 INTERNATIONAL UNIT, 3/WEEK
  3. HEMO-8R [Suspect]
     Active Substance: ANTIHEMOPHILIC FACTOR, HUMAN RECOMBINANT
     Dosage: 3000 INTERNATIONAL UNIT, 3/WEEK
     Dates: start: 20190329
  4. HEMO-8R [Suspect]
     Active Substance: ANTIHEMOPHILIC FACTOR, HUMAN RECOMBINANT
     Dosage: 2000 INTERNATIONAL UNIT, QD

REACTIONS (6)
  - Osteoarthritis [Recovering/Resolving]
  - Chondropathy [Recovering/Resolving]
  - Cartilage injury [Recovering/Resolving]
  - Weight increased [Recovered/Resolved]
  - Inappropriate schedule of product administration [Unknown]
  - Limb injury [Recovering/Resolving]
